FAERS Safety Report 19201175 (Version 2)
Quarter: 2021Q2

REPORT INFORMATION
  Report Type: Spontaneous
  Country: NL (occurrence: NL)
  Receive Date: 20210430
  Receipt Date: 20210616
  Transmission Date: 20210717
  Serious: Yes (Death, Life-Threatening)
  Sender: FDA-Public Use
  Company Number: NL-ASTRAZENECA-2021A363495

PATIENT
  Age: 61 Year
  Sex: Female
  Weight: 70 kg

DRUGS (13)
  1. OLAPARIB. [Suspect]
     Active Substance: OLAPARIB
     Indication: OVARIAN CANCER
     Dosage: 2X PER DAY 8 PIECES
     Route: 065
     Dates: start: 201611, end: 20210413
  2. NATRIUMCHLORIDE [Concomitant]
     Active Substance: SODIUM CHLORIDE
     Dosage: TABLET, 1 G (GRAM)
  3. METOPROLOL. [Concomitant]
     Active Substance: METOPROLOL
     Dosage: REGULATED RELEASE TABLET 25 MG (MILLIGRAMS)
  4. LOSARTAN. [Concomitant]
     Active Substance: LOSARTAN
     Dosage: 50 MG FILM?COATED TABLET (MILLIGRAM)
  5. MAGNESIUMCITRAAT [Concomitant]
     Dosage: CAPSULE, 376 MG (MILLIGRAM)
  6. OMEPRAZOL [Concomitant]
     Active Substance: OMEPRAZOLE
     Dosage: GASTRO?RESISTANT CAPSULE, 20 MG (MILLIGRAM)
  7. SIMVASTATINE [Concomitant]
     Active Substance: SIMVASTATIN
     Dosage: 40 MG FILM?COATED TABLET (MILLIGRAM)
  8. PARACETAMOL [Concomitant]
     Active Substance: ACETAMINOPHEN
     Dosage: CAPSULE, 500 MG (MILLIGRAM)
  9. INSULINE GEWOON INJVLST [Concomitant]
     Dosage: INJECTION FLUID, 100 IU/ ML (UNITS PER MILLILITER)
  10. INSULINE GLARGINE [Concomitant]
     Active Substance: INSULIN GLARGINE
     Dosage: INJECTION FLUID, 300 UNITS/ML (UNITS PERMILLILITERS)
  11. OXYCODON [Concomitant]
     Active Substance: OXYCODONE
     Dosage: CAPSULE, 5 MG (MILLIGRAM)
  12. ZOLPIDEM [Concomitant]
     Active Substance: ZOLPIDEM TARTRATE
     Dosage: TABLET, 10 MG (MILLIGRAM)
  13. AMITRIPTYLINE HCL [Concomitant]
     Active Substance: AMITRIPTYLINE
     Dosage: TABLET, 25 MG (MILLIGRAM)

REACTIONS (2)
  - Myelodysplastic syndrome [Fatal]
  - Acute leukaemia [Fatal]

NARRATIVE: CASE EVENT DATE: 20210413
